FAERS Safety Report 5768893-3 (Version None)
Quarter: 2008Q2

REPORT INFORMATION
  Report Type: 
  Country: None (occurrence: None)
  Receive Date: 20080612
  Receipt Date: 20080314
  Transmission Date: 20081010
  Serious: No
  Sender: FDA-Public Use
  Company Number: US-ABBOTT-08P-163-0442634-00

PATIENT
  Sex: Male
  Weight: 74.456 kg

DRUGS (1)
  1. HUMIRA [Suspect]
     Indication: CROHN'S DISEASE
     Dates: start: 20080208

REACTIONS (2)
  - CROHN'S DISEASE [None]
  - HAEMATOCHEZIA [None]
